FAERS Safety Report 12153896 (Version 1)
Quarter: 2016Q1

REPORT INFORMATION
  Report Type: Spontaneous
  Country: IE (occurrence: IE)
  Receive Date: 20160307
  Receipt Date: 20160307
  Transmission Date: 20160526
  Serious: Yes (Other)
  Sender: FDA-Public Use
  Company Number: IE-HOSPIRA-3196309

PATIENT

DRUGS (1)
  1. DEXDOR [Suspect]
     Active Substance: DEXMEDETOMIDINE HYDROCHLORIDE
     Indication: SEDATIVE THERAPY
     Dosage: RECEIVED AGAIN AFTER TWO DAYS
     Route: 065

REACTIONS (1)
  - Drug hypersensitivity [Unknown]
